FAERS Safety Report 17587556 (Version 1)
Quarter: 2020Q1

REPORT INFORMATION
  Report Type: Spontaneous
  Country: CA (occurrence: CA)
  Receive Date: 20200326
  Receipt Date: 20200326
  Transmission Date: 20200409
  Serious: Yes (Other)
  Sender: FDA-Public Use
  Company Number: NVSC2020CA084547

PATIENT
  Sex: Female

DRUGS (1)
  1. ESTALIS [Suspect]
     Active Substance: ESTRADIOL\NORETHINDRONE ACETATE
     Indication: PRODUCT USED FOR UNKNOWN INDICATION
     Dosage: (250/50)
     Route: 065

REACTIONS (5)
  - Application site rash [Unknown]
  - Product quality issue [Unknown]
  - Haemorrhage [Unknown]
  - Application site dryness [Unknown]
  - Application site pruritus [Unknown]
